FAERS Safety Report 21357445 (Version 5)
Quarter: 2022Q4

REPORT INFORMATION
  Report Type: Report from Study
  Country: CN (occurrence: None)
  Receive Date: 20220921
  Receipt Date: 20221206
  Transmission Date: 20230113
  Serious: Yes (Other)
  Sender: FDA-Public Use
  Company Number: CN-ROCHE-2764630

PATIENT
  Age: 49 Year
  Sex: Female
  Weight: 49.5 kg

DRUGS (4)
  1. FARICIMAB [Suspect]
     Active Substance: FARICIMAB
     Indication: Diabetic retinal oedema
     Dosage: MOST RECENT DOSE PRIOR TO AE AND SAE ONSET ON 8/JAN/2021 AT 12:54
     Route: 050
     Dates: start: 20201111
  2. FARICIMAB [Suspect]
     Active Substance: FARICIMAB
     Indication: Diabetic retinal oedema
     Dosage: MOST RECENT DOSE PRIOR TO AE AND SAE ONSET ON 8/JAN/2021 AT 12:54
     Route: 050
     Dates: start: 20201111
  3. METFORMIN HYDROCHLORIDE [Concomitant]
     Active Substance: METFORMIN HYDROCHLORIDE
     Indication: Type 2 diabetes mellitus
     Route: 048
     Dates: start: 201912
  4. GLIMEPIRIDE [Concomitant]
     Active Substance: GLIMEPIRIDE
     Indication: Type 2 diabetes mellitus
     Route: 048
     Dates: start: 201912

REACTIONS (2)
  - Vitreous haemorrhage [Recovered/Resolved]
  - Vitreous haemorrhage [Recovered/Resolved]

NARRATIVE: CASE EVENT DATE: 20210204
